FAERS Safety Report 10563039 (Version 2)
Quarter: 2014Q4

REPORT INFORMATION
  Report Type: Spontaneous
  Country: DZ (occurrence: DZ)
  Receive Date: 20141104
  Receipt Date: 20141205
  Transmission Date: 20150529
  Serious: Yes (Death, Other)
  Sender: FDA-Public Use
  Company Number: DZ-SA-2014SA149116

PATIENT
  Age: 62 Year
  Sex: Female

DRUGS (4)
  1. DEXAMETHASONE. [Concomitant]
     Active Substance: DEXAMETHASONE
     Dosage: 120MG DEXAMETHASONE AT D0
  2. TAXOTERE [Suspect]
     Active Substance: DOCETAXEL
     Indication: BREAST CANCER METASTATIC
     Route: 042
     Dates: start: 20140629
  3. SOLUPRED [Concomitant]
     Active Substance: PREDNISOLONE
     Dosage: SOLUPRED 40MG 2XDAY AT D-1
  4. SOLUPRED [Concomitant]
     Active Substance: PREDNISOLONE
     Dosage: SOLUPRED 40MG 2XDAY AT D+1

REACTIONS (4)
  - Mucosal inflammation [Fatal]
  - Skin discolouration [Unknown]
  - Skin exfoliation [Unknown]
  - Burns second degree [Unknown]

NARRATIVE: CASE EVENT DATE: 201407
